FAERS Safety Report 5734090-0 (Version None)
Quarter: 2008Q2

REPORT INFORMATION
  Report Type: 
  Country: None (occurrence: None)
  Receive Date: 20080509
  Receipt Date: 20080505
  Transmission Date: 20081010
  Serious: Yes (Hospitalization, Other)
  Sender: FDA-Public Use
  Company Number: ES-ALLERGAN-0805371US

PATIENT
  Sex: Male

DRUGS (1)
  1. BOTOX [Suspect]
     Indication: ANAL FISSURE
     Dosage: UNK, SINGLE
     Route: 030

REACTIONS (3)
  - HYDROCELE [None]
  - NECROTISING FASCIITIS [None]
  - WOUND INFECTION STAPHYLOCOCCAL [None]
